FAERS Safety Report 7050416-2 (Version None)
Quarter: 2010Q4

REPORT INFORMATION
  Report Type: 
  Country: None (occurrence: None)
  Receive Date: 20101018
  Receipt Date: 20101008
  Transmission Date: 20110411
  Serious: Yes (Other)
  Sender: FDA-Public Use
  Company Number: US-PFIZER INC-2010102311

PATIENT
  Sex: Female
  Weight: 64.863 kg

DRUGS (2)
  1. CHANTIX [Suspect]
     Indication: SMOKING CESSATION THERAPY
     Dosage: 0.5 MG, 1X/DAY
     Route: 048
     Dates: start: 20100601
  2. CHANTIX [Suspect]
     Dosage: 1 ^ML^ TWICE DAILY
     Route: 048
     Dates: end: 20100718

REACTIONS (3)
  - DIABETES MELLITUS [None]
  - VISION BLURRED [None]
  - VISUAL IMPAIRMENT [None]
